FAERS Safety Report 25130067 (Version 3)
Quarter: 2025Q3

REPORT INFORMATION
  Report Type: Report from Study
  Country: US (occurrence: US)
  Receive Date: 20250327
  Receipt Date: 20250716
  Transmission Date: 20251021
  Serious: Yes (Other)
  Sender: OTSUKA
  Company Number: US-OTSUKA-2024_029013

PATIENT
  Age: 31 Year
  Sex: Male

DRUGS (1)
  1. TOLVAPTAN [Suspect]
     Active Substance: TOLVAPTAN
     Indication: Congenital cystic kidney disease
     Route: 065
     Dates: start: 20240927

REACTIONS (7)
  - Cerebrospinal fluid leakage [Recovered/Resolved]
  - Rhinorrhoea [Recovered/Resolved]
  - Dysuria [Unknown]
  - Muscle spasms [Recovering/Resolving]
  - Liver function test increased [Recovered/Resolved]
  - Thirst [Unknown]
  - Polyuria [Unknown]

NARRATIVE: CASE EVENT DATE: 20241009
